FAERS Safety Report 18631615 (Version 1)
Quarter: 2020Q4

REPORT INFORMATION
  Report Type: Spontaneous
  Country: US (occurrence: US)
  Receive Date: 20201217
  Receipt Date: 20201217
  Transmission Date: 20210114
  Serious: Yes (Other)
  Sender: FDA-Public Use
  Company Number: US-JNJFOC-20201221048

PATIENT

DRUGS (1)
  1. BALVERSA [Suspect]
     Active Substance: ERDAFITINIB
     Indication: ADENOCARCINOMA GASTRIC
     Route: 048

REACTIONS (3)
  - Product use in unapproved indication [Unknown]
  - Serous retinal detachment [Unknown]
  - Off label use [Unknown]
